FAERS Safety Report 16360813 (Version 1)
Quarter: 2019Q2

REPORT INFORMATION
  Report Type: Report from Study
  Country: US (occurrence: US)
  Receive Date: 20190528
  Receipt Date: 20190528
  Transmission Date: 20190711
  Serious: Yes (Hospitalization)
  Sender: FDA-Public Use
  Company Number: US-ROCHE-2307180

PATIENT
  Age: 71 Year
  Sex: Male
  Weight: 85.4 kg

DRUGS (29)
  1. ETOPOSIDE. [Suspect]
     Active Substance: ETOPOSIDE
     Indication: RICHTER^S SYNDROME
     Dosage: ONCE IN 24 HOURS FOR 4 DAYS
     Route: 042
     Dates: start: 20190508, end: 20190513
  2. FLONASE [Concomitant]
     Active Substance: FLUTICASONE PROPIONATE
  3. LISINOPRIL. [Concomitant]
     Active Substance: LISINOPRIL
  4. XANAX [Concomitant]
     Active Substance: ALPRAZOLAM
  5. RITUXIMAB. [Suspect]
     Active Substance: RITUXIMAB
     Indication: RICHTER^S SYNDROME
     Dosage: ONCE
     Route: 042
     Dates: start: 20190508
  6. MAG OXIDE [Concomitant]
     Active Substance: MAGNESIUM OXIDE
  7. BACTRIM [Concomitant]
     Active Substance: SULFAMETHOXAZOLE\TRIMETHOPRIM
  8. PREDNISONE. [Suspect]
     Active Substance: PREDNISONE
     Indication: CHRONIC LYMPHOCYTIC LEUKAEMIA
     Route: 048
     Dates: start: 20190407, end: 20190410
  9. LOPRESSOR [Concomitant]
     Active Substance: METOPROLOL TARTRATE
  10. PROTONIX [Concomitant]
     Active Substance: PANTOPRAZOLE SODIUM
  11. DOCUSATE SODIUM;SENNA [Concomitant]
     Active Substance: DOCUSATE SODIUM\SENNOSIDES
  12. VENETOCLAX. [Suspect]
     Active Substance: VENETOCLAX
     Indication: RICHTER^S SYNDROME
     Route: 048
     Dates: start: 20190508, end: 20190517
  13. ALLOPURINOL. [Concomitant]
     Active Substance: ALLOPURINOL
  14. MAXIPIME [Concomitant]
     Active Substance: CEFEPIME HYDROCHLORIDE
  15. LEVAQUIN [Concomitant]
     Active Substance: LEVOFLOXACIN
  16. CYCLOPHOSPHAMIDE. [Suspect]
     Active Substance: CYCLOPHOSPHAMIDE
     Indication: RICHTER^S SYNDROME
     Dosage: ONCE
     Route: 042
     Dates: start: 20190513
  17. CLARITIN [Concomitant]
     Active Substance: LORATADINE
  18. METFORMIN [Concomitant]
     Active Substance: METFORMIN HYDROCHLORIDE
     Route: 065
  19. HUMALOG [Concomitant]
     Active Substance: INSULIN LISPRO
  20. TYLENOL [Concomitant]
     Active Substance: ACETAMINOPHEN
  21. RITUXIMAB. [Suspect]
     Active Substance: RITUXIMAB
     Indication: CHRONIC LYMPHOCYTIC LEUKAEMIA
     Route: 041
     Dates: start: 20181213
  22. DOXORUBICIN [Suspect]
     Active Substance: DOXORUBICIN
     Indication: RICHTER^S SYNDROME
     Route: 042
     Dates: start: 20190508, end: 20190513
  23. ZOFRAN [Concomitant]
     Active Substance: ONDANSETRON HYDROCHLORIDE
  24. GLIMEPIRIDE. [Concomitant]
     Active Substance: GLIMEPIRIDE
  25. ONCOVIN [Suspect]
     Active Substance: VINCRISTINE SULFATE
     Indication: CHRONIC LYMPHOCYTIC LEUKAEMIA
     Route: 042
     Dates: start: 20190407, end: 20190410
  26. ONCOVIN [Suspect]
     Active Substance: VINCRISTINE SULFATE
     Indication: RICHTER^S SYNDROME
     Route: 042
     Dates: start: 20190508, end: 20190513
  27. ETOPOSIDE. [Suspect]
     Active Substance: ETOPOSIDE
     Indication: CHRONIC LYMPHOCYTIC LEUKAEMIA
     Route: 042
     Dates: start: 20190407, end: 20190410
  28. PREDNISONE. [Suspect]
     Active Substance: PREDNISONE
     Indication: RICHTER^S SYNDROME
     Route: 048
     Dates: start: 20190508, end: 20190513
  29. MIRALAX [Concomitant]
     Active Substance: POLYETHYLENE GLYCOL 3350

REACTIONS (2)
  - Acute sinusitis [Unknown]
  - Febrile neutropenia [Unknown]

NARRATIVE: CASE EVENT DATE: 20190417
